FAERS Safety Report 5967836-7 (Version None)
Quarter: 2008Q4

REPORT INFORMATION
  Report Type: 
  Country: None (occurrence: None)
  Receive Date: 20081126
  Receipt Date: 20081125
  Transmission Date: 20090506
  Serious: Yes (Other)
  Sender: FDA-Public Use
  Company Number: US-BAYER-200822841NA

PATIENT
  Age: 76 Year
  Sex: Male

DRUGS (4)
  1. SORAFENIB [Suspect]
     Indication: RENAL CELL CARCINOMA
     Route: 048
     Dates: end: 20060914
  2. SORAFENIB [Suspect]
     Dosage: TOTAL DAILY DOSE: 1200 MG
     Route: 048
  3. SYNTHROID [Concomitant]
     Dosage: TOTAL DAILY DOSE: 0.5 ?G
  4. SYNTHROID [Concomitant]
     Dosage: TOTAL DAILY DOSE: 1.0 ?G
     Dates: start: 20060914

REACTIONS (3)
  - HYPOCALCAEMIA [None]
  - HYPOPHOSPHATAEMIA [None]
  - HYPOTHYROIDISM [None]
